FAERS Safety Report 6153186-5 (Version None)
Quarter: 2009Q2

REPORT INFORMATION
  Report Type: 
  Country: None (occurrence: None)
  Receive Date: 20090413
  Receipt Date: 20090408
  Transmission Date: 20091009
  Serious: Yes (Hospitalization)
  Sender: FDA-Public Use
  Company Number: US-CELGENEUS-163-20785-09010696

PATIENT
  Sex: Female

DRUGS (3)
  1. THALOMID [Suspect]
     Indication: MULTIPLE MYELOMA
     Route: 048
     Dates: start: 20071201
  2. THALOMID [Suspect]
     Route: 048
     Dates: start: 20021001, end: 20021101
  3. THALOMID [Suspect]
     Route: 048
     Dates: start: 20021201, end: 20040601

REACTIONS (1)
  - RENAL FAILURE CHRONIC [None]
